FAERS Safety Report 8479456-3 (Version None)
Quarter: 2012Q2

REPORT INFORMATION
  Report Type: 
  Country: None (occurrence: None)
  Receive Date: 20120629
  Receipt Date: 20120620
  Transmission Date: 20120825
  Serious: Yes (Hospitalization)
  Sender: FDA-Public Use
  Company Number: NL-ABBOTT-10P-114-0690841-00

PATIENT
  Sex: Female
  Weight: 80 kg

DRUGS (9)
  1. FUSIDIC ACID [Concomitant]
     Indication: EYE PAIN
     Dosage: EYE GEL 10MG/G/ TUBE 5 G
  2. HYDROCHLOROTHIAZIDE [Concomitant]
     Indication: HYPERTENSION
     Dosage: 25 MG
     Route: 048
  3. LEVOTHYROXINE [Concomitant]
     Indication: HYPOTHYROIDISM
     Dosage: TABLET 25 MCG (ACID)
     Route: 048
     Dates: start: 19950101
  4. METOPROLOL SUCCINATE W/HYDROCHLOROTHIAZIDE [Concomitant]
     Indication: HYPERTENSION
     Dosage: TAB MGA 100/12.5 MG
     Route: 048
  5. FOLIC ACID [Concomitant]
     Indication: VITAMIN B COMPLEX DEFICIENCY
     Dosage: 5MG
     Route: 048
  6. PERINDOPRIL ARGININE [Concomitant]
     Indication: HYPERTENSION
     Dosage: TABLET 5 MG
     Route: 048
  7. HUMIRA [Suspect]
     Indication: RHEUMATOID ARTHRITIS
     Route: 058
     Dates: start: 20101122
  8. LEFLUNOMIDE [Concomitant]
     Indication: RHEUMATOID ARTHRITIS
     Dosage: COATED TABLET 10MG
     Route: 048
  9. TEMAZEPAM [Concomitant]
     Indication: INSOMNIA
     Dosage: TABLET 20MG
     Route: 048

REACTIONS (8)
  - DYSPNOEA [None]
  - EAR PAIN [None]
  - VISION BLURRED [None]
  - EYE PAIN [None]
  - ERYTHEMA [None]
  - HEADACHE [None]
  - POOR QUALITY SLEEP [None]
  - PAIN IN JAW [None]
